FAERS Safety Report 10691329 (Version 2)
Quarter: 2015Q1

REPORT INFORMATION
  Report Type: Spontaneous
  Country: CA (occurrence: CA)
  Receive Date: 20150105
  Receipt Date: 20150105
  Transmission Date: 20150720
  Serious: Yes (Other)
  Sender: FDA-Public Use
  Company Number: CA-GLAXOSMITHKLINE-A1060724A

PATIENT
  Sex: Female

DRUGS (2)
  1. VOTRIENT [Suspect]
     Active Substance: PAZOPANIB HYDROCHLORIDE
     Indication: METASTATIC RENAL CELL CARCINOMA
     Dosage: 400 MG, 1D
     Route: 065
  2. VOTRIENT [Suspect]
     Active Substance: PAZOPANIB HYDROCHLORIDE
     Dosage: 800; DAILY
     Dates: end: 20141117

REACTIONS (14)
  - Aphonia [Unknown]
  - Drug intolerance [Unknown]
  - Fatigue [Unknown]
  - Dry mouth [Unknown]
  - Nausea [Unknown]
  - Pulmonary pain [Unknown]
  - Decreased appetite [Unknown]
  - Gait disturbance [Unknown]
  - Malignant neoplasm progression [Unknown]
  - Migraine [Unknown]
  - Hypertension [Unknown]
  - Nasopharyngitis [Unknown]
  - Toxicity to various agents [Unknown]
  - Insomnia [Unknown]
